FAERS Safety Report 5483497-8 (Version None)
Quarter: 2007Q4

REPORT INFORMATION
  Report Type: 
  Country: None (occurrence: None)
  Receive Date: 20071012
  Receipt Date: 20070927
  Transmission Date: 20080405
  Serious: Yes (Other)
  Sender: FDA-Public Use
  Company Number: CA-ELI_LILLY_AND_COMPANY-CA200707004652

PATIENT
  Age: 82 Year
  Sex: Female

DRUGS (7)
  1. FORTEO [Suspect]
     Indication: OSTEOPOROSIS
     Dosage: 20 UG, DAILY (1/D)
     Route: 058
     Dates: start: 20061013
  2. FORTEO [Suspect]
     Dosage: UNK, UNK
     Dates: start: 20070728
  3. ATENOLOL [Concomitant]
     Dosage: UNK, UNK
  4. VASOTEC [Concomitant]
     Dosage: UNK, UNK
  5. HYDROCHLOROTHIAZIDE [Concomitant]
     Dosage: UNK, UNK
  6. CALCIUM [Concomitant]
     Dosage: 500 MG, DAILY (1/D)
  7. VITAMIN D [Concomitant]
     Dosage: 800 U, UNK

REACTIONS (1)
  - BLOOD CALCIUM INCREASED [None]
